FAERS Safety Report 17425914 (Version 1)
Quarter: 2020Q1

REPORT INFORMATION
  Report Type: Spontaneous
  Country: PT (occurrence: PT)
  Receive Date: 20200217
  Receipt Date: 20200217
  Transmission Date: 20200409
  Serious: Yes (Hospitalization, Other)
  Sender: FDA-Public Use
  Company Number: PT-VIIV HEALTHCARE LIMITED-PT2020GSK023213

PATIENT
  Age: 46 Year
  Sex: Male

DRUGS (7)
  1. ABACAVIR SULFATE + LAMIVUDINE [Suspect]
     Active Substance: ABACAVIR SULFATE\LAMIVUDINE
     Indication: HIV INFECTION
     Dosage: UNK
  2. DOLUTEGRAVIR [Suspect]
     Active Substance: DOLUTEGRAVIR
     Indication: HIV INFECTION
     Dosage: UNK
  3. FLUCONAZOLE. [Suspect]
     Active Substance: FLUCONAZOLE
     Dosage: 800 MG, QD
  4. FLUCONAZOLE. [Suspect]
     Active Substance: FLUCONAZOLE
     Dosage: 200 MG, QD
  5. TRIMETHOPRIM + SULFAMETHOXAZOL [Concomitant]
     Active Substance: SULFAMERAZINE SODIUM\TRIMETHOPRIM
     Indication: PNEUMOCYSTIS JIROVECII PNEUMONIA
     Dosage: UNK
  6. TRIMETHOPRIM + SULFAMETHOXAZOL [Concomitant]
     Active Substance: SULFAMERAZINE SODIUM\TRIMETHOPRIM
     Indication: ANTIFUNGAL PROPHYLAXIS
  7. FLUCONAZOLE. [Suspect]
     Active Substance: FLUCONAZOLE
     Indication: CRYPTOCOCCOSIS
     Dosage: 400 MG, QD

REACTIONS (31)
  - C-reactive protein increased [Recovered/Resolved]
  - Pleocytosis [Recovered/Resolved]
  - Central nervous system lesion [Recovered/Resolved]
  - Bronchial disorder [Recovered/Resolved]
  - Metaplasia [Recovered/Resolved]
  - Disseminated cryptococcosis [Recovered/Resolved]
  - Treatment noncompliance [Unknown]
  - Pyrexia [Recovered/Resolved]
  - Night sweats [Recovered/Resolved]
  - Pulmonary hilum mass [Recovered/Resolved]
  - Hepatosplenomegaly [Recovered/Resolved]
  - White matter lesion [Recovered/Resolved]
  - Decreased appetite [Recovered/Resolved]
  - Immune reconstitution inflammatory syndrome [Recovered/Resolved]
  - Cryptococcosis [Recovered/Resolved]
  - Abnormal loss of weight [Recovered/Resolved]
  - Meningitis cryptococcal [Recovered/Resolved]
  - Fatigue [Recovered/Resolved]
  - Headache [Recovered/Resolved]
  - Lymphadenopathy mediastinal [Recovered/Resolved]
  - Abnormal behaviour [Recovered/Resolved]
  - Mass [Recovered/Resolved]
  - Disinhibition [Recovered/Resolved]
  - Lymphadenopathy [Recovered/Resolved]
  - Intracranial pressure increased [Recovered/Resolved]
  - Lung opacity [Recovered/Resolved]
  - Depression [Recovered/Resolved]
  - Anxiety [Recovered/Resolved]
  - Swelling [Recovered/Resolved]
  - Malaise [Recovered/Resolved]
  - Pulmonary mass [Recovered/Resolved]
